FAERS Safety Report 6699478-2 (Version None)
Quarter: 2010Q2

REPORT INFORMATION
  Report Type: 
  Country: None (occurrence: None)
  Receive Date: 20100426
  Receipt Date: 20100405
  Transmission Date: 20101027
  Serious: Yes (Hospitalization, Other)
  Sender: FDA-Public Use
  Company Number: JP-SOLVAY-00309007138

PATIENT
  Age: 30 Year
  Sex: Female

DRUGS (7)
  1. DEPROMEL 25 (FLUVOXAMINE MALEATE IMMEDIATE RELEASE) [Suspect]
     Indication: DEPRESSION
     Dosage: 50 MILLIGRAM(S)
     Route: 048
     Dates: start: 20080717, end: 20090801
  2. ALPHA-GLUCOSIDASE INHIBITOR       (ALPHA-GLUCOSIDASE INHIBITOR) [Suspect]
     Indication: DRUG USE FOR UNKNOWN INDICATION
  3. BIOFERMIN (LACTOBACILLUS SPOROGENES) [Concomitant]
  4. MAGMITT (MAGNESIUM OXIDE) [Concomitant]
  5. GASRICK (FAMOTIDINE) [Concomitant]
  6. ALPRAZOLAM [Concomitant]
  7. GANATON (ITOPRIDE HYDROCHLORIDE) [Concomitant]

REACTIONS (6)
  - ALTERED STATE OF CONSCIOUSNESS [None]
  - BLOOD GLUCOSE DECREASED [None]
  - INSOMNIA [None]
  - NEUROSIS [None]
  - OVERDOSE [None]
  - SUICIDE ATTEMPT [None]
